FAERS Safety Report 8201706-9 (Version None)
Quarter: 2012Q1

REPORT INFORMATION
  Report Type: 
  Country: None (occurrence: None)
  Receive Date: 20120312
  Receipt Date: 20120306
  Transmission Date: 20120608
  Serious: Yes (Death, Other)
  Sender: FDA-Public Use
  Company Number: PE-PFIZER INC-2012061190

PATIENT
  Age: 93 Year
  Sex: Female

DRUGS (1)
  1. XALATAN [Suspect]
     Indication: GLAUCOMA
     Dosage: 0.063 MG ONCE DAILY
     Route: 047
     Dates: start: 20020101

REACTIONS (2)
  - DEATH [None]
  - MALAISE [None]
